FAERS Safety Report 4513100-2 (Version None)
Quarter: 2004Q4

REPORT INFORMATION
  Report Type: 
  Country: None (occurrence: None)
  Receive Date: 20040928
  Receipt Date: 20040629
  Transmission Date: 20050328
  Serious: No
  Sender: FDA-Public Use
  Company Number: 04P-163-0264982-00

PATIENT
  Age: 66 Year
  Sex: Male

DRUGS (8)
  1. HUMIRA [Suspect]
     Indication: RHEUMATOID ARTHRITIS
     Dosage: 40 MG, 1 IN 2 WK, SUBCUTANEOUS
     Route: 058
     Dates: start: 20040401, end: 20040601
  2. ALBUTEROL [Concomitant]
  3. SERETIDE MITE [Concomitant]
  4. CELECOXIB [Concomitant]
  5. LEFLUNOMIDE [Concomitant]
  6. FOLIC ACID [Concomitant]
  7. FAMOTIDINE [Concomitant]
  8. DYAZIDE [Concomitant]

REACTIONS (4)
  - CONDITION AGGRAVATED [None]
  - COUGH [None]
  - PARAESTHESIA [None]
  - PERIPHERAL COLDNESS [None]
